FAERS Safety Report 4707436-X (Version None)
Quarter: 2005Q3

REPORT INFORMATION
  Report Type: 
  Country: None (occurrence: None)
  Receive Date: 20050706
  Receipt Date: 20050627
  Transmission Date: 20060218
  Serious: Yes (Other)
  Sender: FDA-Public Use
  Company Number: GB-BRISTOL-MYERS SQUIBB COMPANY-13017223

PATIENT
  Age: 22 Year
  Sex: Female

DRUGS (1)
  1. METHOTREXATE [Suspect]
     Indication: ACUTE LYMPHOCYTIC LEUKAEMIA
     Route: 037

REACTIONS (6)
  - APHASIA [None]
  - DYSPHASIA [None]
  - DYSPRAXIA [None]
  - ENCEPHALOPATHY [None]
  - NEUROTOXICITY [None]
  - TOXIC INDUCED ENCEPHALOPATHY [None]
